FAERS Safety Report 8058718-8 (Version None)
Quarter: 2012Q1

REPORT INFORMATION
  Report Type: 
  Country: None (occurrence: None)
  Receive Date: 20120120
  Receipt Date: 20120113
  Transmission Date: 20120608
  Serious: Yes (Hospitalization, Other)
  Sender: FDA-Public Use
  Company Number: US-JNJFOC-20120105715

PATIENT
  Age: 20 Year
  Sex: Male

DRUGS (4)
  1. RISPERIDONE [Suspect]
     Indication: MILD MENTAL RETARDATION
     Dosage: 0.25 MG EVERY MORNING AND 1 MG EVERY EVENING
     Route: 065
  2. FINGOLIMOD [Interacting]
     Indication: MULTIPLE SCLEROSIS RELAPSE
     Route: 065
  3. PREDNISOLONE [Concomitant]
     Route: 048
  4. METHYLPREDNISOLONE [Concomitant]
     Indication: MULTIPLE SCLEROSIS
     Dosage: 1 G DAILY FOR 3 DAYS
     Route: 042

REACTIONS (9)
  - NAUSEA [None]
  - CONVULSION [None]
  - MALAISE [None]
  - CARDIAC ARREST [None]
  - DEMYELINATION [None]
  - UNRESPONSIVE TO STIMULI [None]
  - BRADYCARDIA [None]
  - MULTIPLE SCLEROSIS RELAPSE [None]
  - DRUG INTERACTION [None]
